FAERS Safety Report 8585928 (Version 3)
Quarter: 2012Q4

REPORT INFORMATION
  Report Type: 
  Country: US (occurrence: US)
  Receive Date: 20120530
  Receipt Date: 20120920
  Transmission Date: 20130627
  Serious: Yes (Death, Hospitalization)
  Sender: FDA-Public Use
  Company Number: US-BAYER-2012-050302

PATIENT
  Age: 82 Year
  Sex: Male

DRUGS (11)
  1. BAYER GENUINE ASPIRIN ORIGINAL STRENGTH [Suspect]
  2. METFORMIN [Suspect]
     Dosage: Daily dose 2000 mg
  3. SAXAGLIPTIN [Suspect]
     Indication: TYPE 2 DIABETES MELLITUS
     Dosage: UNK
     Dates: start: 20110113
  4. INSULIN GLARGINE [Suspect]
     Indication: DIABETES MELLITUS
     Dosage: Daily dose 110 iu
  5. INSULIN ASPART [Suspect]
     Indication: DIABETES MELLITUS
     Dosage: Daily dose 108 iu
  6. WARFARIN SODIUM [Suspect]
     Indication: ATRIAL FIBRILLATION
  7. CIPROFLOXACIN [Concomitant]
     Dosage: UNK
     Dates: start: 20110520
  8. METRONIDAZOLE [Concomitant]
  9. BETA BLOCKING AGENTS [Concomitant]
  10. HMG COA REDUCTASE INHIBITORS [Concomitant]
  11. ANGIOTENSIN II ANTAGONISTS [Concomitant]

REACTIONS (7)
  - Gastric ulcer haemorrhage [Fatal]
  - Haematemesis [Fatal]
  - Faeces discoloured [Fatal]
  - Nausea [Fatal]
  - Abdominal pain upper [Fatal]
  - Duodenal perforation [None]
  - Dizziness [None]
